FAERS Safety Report 5744765-5 (Version None)
Quarter: 2008Q2

REPORT INFORMATION
  Report Type: 
  Country: None (occurrence: None)
  Receive Date: 20080520
  Receipt Date: 20080512
  Transmission Date: 20081010
  Serious: Yes (Hospitalization)
  Sender: FDA-Public Use
  Company Number: FR-PFIZER INC-2008035053

PATIENT
  Sex: Male

DRUGS (4)
  1. ZOXAN LP [Suspect]
     Indication: BENIGN PROSTATIC HYPERPLASIA
     Dosage: DAILY DOSE:8MG
     Route: 048
     Dates: start: 20070101, end: 20080115
  2. CASODEX [Suspect]
     Indication: PROSTATE CANCER
     Dosage: DAILY DOSE:150MG
     Route: 048
     Dates: start: 20071001, end: 20080110
  3. ZOLADEX [Suspect]
     Indication: PROSTATE CANCER
     Dosage: DAILY DOSE:3.6MG
     Route: 058
     Dates: start: 20071001, end: 20071101
  4. TINSET [Concomitant]
     Route: 048
     Dates: start: 20071030, end: 20071201

REACTIONS (3)
  - CONJUNCTIVITIS [None]
  - ERYTHRODERMIC PSORIASIS [None]
  - PYREXIA [None]
